FAERS Safety Report 10203408 (Version 4)
Quarter: 2017Q2

REPORT INFORMATION
  Report Type: Report from Study
  Country: US (occurrence: US)
  Receive Date: 20140529
  Receipt Date: 20170406
  Transmission Date: 20170829
  Serious: Yes (Hospitalization, Other)
  Sender: FDA-Public Use
  Company Number: PHHY2014US060976

PATIENT
  Age: 49 Year
  Sex: Male
  Weight: 93 kg

DRUGS (14)
  1. FLORINEF ACETATE [Concomitant]
     Active Substance: FLUDROCORTISONE ACETATE
     Dosage: 0.1 MG
  2. VALCYTE [Suspect]
     Active Substance: VALGANCICLOVIR HYDROCHLORIDE
     Indication: PROPHYLAXIS
     Dosage: 450 MG, ONCE DAILY
     Route: 048
     Dates: start: 20131126, end: 20140326
  3. SIMULECT [Suspect]
     Active Substance: BASILIXIMAB
     Indication: RENAL TRANSPLANT
     Dosage: 20 MG, DAY 0
     Route: 042
     Dates: start: 20131023
  4. TACROLIMUS. [Suspect]
     Active Substance: TACROLIMUS
     Indication: RENAL TRANSPLANT
     Dosage: 5 MG, BID
     Route: 048
     Dates: start: 20131024, end: 20131120
  5. TACROLIMUS. [Suspect]
     Active Substance: TACROLIMUS
     Indication: IMMUNOSUPPRESSION
  6. BACTRIM DS [Suspect]
     Active Substance: SULFAMETHOXAZOLE\TRIMETHOPRIM
     Indication: PROPHYLAXIS
     Dosage: 1 TABLET X 3WEEKLY (800 TO 160 MG)
     Route: 048
     Dates: start: 20131028, end: 20140326
  7. PRILOSEC [Concomitant]
     Active Substance: OMEPRAZOLE MAGNESIUM
     Dosage: 20 MG
  8. INSULIN GLARGINE [Concomitant]
     Active Substance: INSULIN GLARGINE
     Dosage: UNK
  9. ASPIRIN. [Concomitant]
     Active Substance: ASPIRIN
     Dosage: 81 MG
  10. PREDNISONE. [Concomitant]
     Active Substance: PREDNISONE
     Indication: PRODUCT USED FOR UNKNOWN INDICATION
     Dosage: UNK
     Route: 065
     Dates: start: 20131023
  11. SIMULECT [Suspect]
     Active Substance: BASILIXIMAB
     Indication: IMMUNOSUPPRESSION
     Dosage: 20 MG, DAY 4
     Route: 042
     Dates: start: 20131027
  12. DELTASONE [Concomitant]
     Active Substance: PREDNISONE
     Dosage: 10 MG
     Dates: start: 20131023
  13. SARNA [Concomitant]
     Dosage: 0.5 TO 0.5 PERCENTGE
  14. INSULIN ASPART [Concomitant]
     Active Substance: INSULIN ASPART
     Dosage: 100 U/ML

REACTIONS (31)
  - Aortic stenosis [Unknown]
  - Blood albumin decreased [Not Recovered/Not Resolved]
  - Neutrophil count decreased [Unknown]
  - Eosinophil percentage decreased [Unknown]
  - Mean cell haemoglobin decreased [Recovered/Resolved]
  - Immunosuppressant drug level decreased [Unknown]
  - Protein total decreased [Recovered/Resolved]
  - Respiratory rate increased [Unknown]
  - Blood creatinine increased [Recovered/Resolved]
  - Blood potassium increased [Unknown]
  - Nasal turbinate hypertrophy [Unknown]
  - Blood urea increased [Recovered/Resolved]
  - Haematocrit decreased [Unknown]
  - Lymphocyte count decreased [Recovered/Resolved]
  - Leukopenia [Recovered/Resolved]
  - Staphylococcal bacteraemia [Recovered/Resolved]
  - Urinary tract infection staphylococcal [Unknown]
  - Blood alkaline phosphatase increased [Unknown]
  - Blood pressure systolic increased [Unknown]
  - Haemoglobin decreased [Recovered/Resolved]
  - Asthenia [Not Recovered/Not Resolved]
  - Pyrexia [Recovered/Resolved]
  - Pruritus [Recovered/Resolved]
  - Aspartate aminotransferase increased [Recovered/Resolved with Sequelae]
  - Blood bilirubin increased [Recovered/Resolved]
  - Monocyte percentage increased [Unknown]
  - Cyst [Unknown]
  - Headache [Recovered/Resolved]
  - Alanine aminotransferase increased [Recovered/Resolved with Sequelae]
  - Oedema mucosal [Unknown]
  - Blood sodium decreased [Recovered/Resolved]

NARRATIVE: CASE EVENT DATE: 20131107
